FAERS Safety Report 6525904-5 (Version None)
Quarter: 2009Q4

REPORT INFORMATION
  Report Type: 
  Country: None (occurrence: None)
  Receive Date: 20091222
  Receipt Date: 20091222
  Transmission Date: 20100525
  Serious: Yes (Hospitalization)
  Sender: FDA-Public Use
  Company Number: 09IT001234

PATIENT
  Age: 84 Year
  Sex: Female

DRUGS (5)
  1. PAROXETINE HCL [Suspect]
     Indication: DEPRESSION
     Dosage: 10 MG. QD, ORAL
     Route: 048
  2. VERAPAMIL [Concomitant]
  3. TICLOPIDINE HYDROCHLORIDE [Concomitant]
  4. SPIRONOLACTONE [Concomitant]
  5. NIMODIPINE [Concomitant]

REACTIONS (14)
  - ALANINE AMINOTRANSFERASE INCREASED [None]
  - ASPARTATE AMINOTRANSFERASE INCREASED [None]
  - CONFUSIONAL STATE [None]
  - DECREASED APPETITE [None]
  - GAMMA-GLUTAMYLTRANSFERASE INCREASED [None]
  - HEPATIC ENCEPHALOPATHY [None]
  - HEPATIC FAILURE [None]
  - HEPATITIS ACUTE [None]
  - HYPERAMMONAEMIA [None]
  - HYPERBILIRUBINAEMIA [None]
  - NAUSEA [None]
  - RENAL FAILURE [None]
  - VOMITING [None]
  - WHITE BLOOD CELL COUNT INCREASED [None]
